FAERS Safety Report 4486664-5 (Version None)
Quarter: 2004Q4

REPORT INFORMATION
  Report Type: 
  Country: None (occurrence: None)
  Receive Date: 20041021
  Receipt Date: 20040916
  Transmission Date: 20050328
  Serious: Yes (Life-Threatening, Hospitalization, Disabling)
  Sender: FDA-Public Use
  Company Number: 0400003EN0010P

PATIENT
  Age: 10 Year
  Sex: Male

DRUGS (3)
  1. ADAGEN [Suspect]
     Indication: ENZYME ABNORMALITY
     Dosage: 25 IU/KG/WEEK IM
     Route: 030
     Dates: start: 19930101
  2. ADDERALL 10 [Concomitant]
  3. CLARINEX [Concomitant]

REACTIONS (6)
  - HEADACHE [None]
  - HEMIPARESIS [None]
  - LYMPHOMA [None]
  - MASS [None]
  - NUCLEAR MAGNETIC RESONANCE IMAGING ABNORMAL [None]
  - STRABISMUS [None]
